FAERS Safety Report 24460394 (Version 1)
Quarter: 2024Q4

REPORT INFORMATION
  Report Type: Report from Study
  Country: US (occurrence: US)
  Receive Date: 20241018
  Receipt Date: 20241018
  Transmission Date: 20250114
  Serious: No
  Sender: ROCHE
  Company Number: US-ROCHE-3536192

PATIENT
  Age: 30 Year
  Sex: Female

DRUGS (7)
  1. RITUXAN [Suspect]
     Active Substance: RITUXIMAB
     Indication: Encephalopathy
     Dosage: 10 MG/ML, 1000 MG FOR 1 DOSE
     Route: 042
  2. RITUXAN [Suspect]
     Active Substance: RITUXIMAB
     Indication: Polyneuropathy
  3. RITUXAN [Suspect]
     Active Substance: RITUXIMAB
     Indication: Seizure
  4. RITUXAN [Suspect]
     Active Substance: RITUXIMAB
     Indication: CSF test abnormal
  5. RITUXAN [Suspect]
     Active Substance: RITUXIMAB
     Indication: Mental status changes
  6. LACOSAMIDE [Concomitant]
     Active Substance: LACOSAMIDE
  7. LEVETIRACETAM [Concomitant]
     Active Substance: LEVETIRACETAM

REACTIONS (2)
  - Off label use [Unknown]
  - No adverse event [Unknown]
